FAERS Safety Report 4333076-0 (Version None)
Quarter: 2004Q1

REPORT INFORMATION
  Report Type: 
  Country: None (occurrence: None)
  Receive Date: 20040330
  Receipt Date: 20040318
  Transmission Date: 20041129
  Serious: No
  Sender: FDA-Public Use
  Company Number: 04P-163-0254161-00

PATIENT
  Age: 8 Year
  Sex: Male
  Weight: 28.2 kg

DRUGS (2)
  1. DIVALPROEX SODIUM [Suspect]
     Indication: CONVULSION
     Dosage: SEE IMAGE
  2. CARBAMAZEPINE [Concomitant]

REACTIONS (7)
  - BLOOD ALBUMIN DECREASED [None]
  - CONVULSION [None]
  - DRUG LEVEL DECREASED [None]
  - HEPATIC ENZYME INCREASED [None]
  - LETHARGY [None]
  - PANCREATITIS ACUTE [None]
  - PYREXIA [None]
